FAERS Safety Report 11116448 (Version 1)
Quarter: 2015Q2

REPORT INFORMATION
  Report Type: Spontaneous
  Country: US (occurrence: US)
  Receive Date: 20150515
  Receipt Date: 20150515
  Transmission Date: 20150821
  Serious: Yes (Hospitalization, Other)
  Sender: FDA-Public Use
  Company Number: US-BAYER-2015-216368

PATIENT

DRUGS (1)
  1. MIRALAX [Suspect]
     Active Substance: POLYETHYLENE GLYCOL 3350
     Indication: CONSTIPATION
     Dosage: UNK
     Dates: start: 2009

REACTIONS (7)
  - Malaise [Unknown]
  - Renal injury [Unknown]
  - Nausea [Unknown]
  - Flank pain [Unknown]
  - Oedema peripheral [Unknown]
  - Abdominal pain [Unknown]
  - Nephropathy [None]

NARRATIVE: CASE EVENT DATE: 200905
